FAERS Safety Report 18861183 (Version 1)
Quarter: 2021Q1

REPORT INFORMATION
  Report Type: Spontaneous
  Country: US (occurrence: US)
  Receive Date: 20210208
  Receipt Date: 20210208
  Transmission Date: 20210420
  Serious: No
  Sender: FDA-Public Use
  Company Number: NVSC2021US028817

PATIENT
  Age: 82 Year
  Sex: Female

DRUGS (1)
  1. VOLTAREN [Suspect]
     Active Substance: DICLOFENAC SODIUM
     Indication: SLE ARTHRITIS
     Dosage: 50 G
     Route: 065
     Dates: start: 20210126

REACTIONS (2)
  - Product use in unapproved indication [Unknown]
  - Tinnitus [Unknown]
